FAERS Safety Report 10082378 (Version 1)
Quarter: 2014Q2

REPORT INFORMATION
  Report Type: Spontaneous
  Country: MX (occurrence: MX)
  Receive Date: 20140416
  Receipt Date: 20140416
  Transmission Date: 20141212
  Serious: Yes (Other)
  Sender: FDA-Public Use
  Company Number: PHHY2014MX046681

PATIENT
  Age: 80 Year
  Sex: Female

DRUGS (1)
  1. ACLASTA [Suspect]
     Dosage: UNK
     Route: 042

REACTIONS (5)
  - Bacteraemia [Unknown]
  - Gastrointestinal infection [Unknown]
  - Pyrexia [Unknown]
  - Chills [Unknown]
  - Diarrhoea [Unknown]
